FAERS Safety Report 10820628 (Version 1)
Quarter: 2015Q1

REPORT INFORMATION
  Report Type: Report from Study
  Country: US (occurrence: US)
  Receive Date: 20150218
  Receipt Date: 20150218
  Transmission Date: 20150721
  Serious: No
  Sender: FDA-Public Use
  Company Number: US-ABBVIE-14K-163-1297214-00

PATIENT
  Age: 41 Year
  Sex: Female

DRUGS (3)
  1. HUMIRA [Suspect]
     Active Substance: ADALIMUMAB
     Indication: CROHN^S DISEASE
     Route: 065
     Dates: start: 20140925, end: 20140925
  2. HUMIRA [Suspect]
     Active Substance: ADALIMUMAB
     Route: 065
  3. HUMIRA [Suspect]
     Active Substance: ADALIMUMAB
     Route: 065
     Dates: start: 20141010, end: 20141010

REACTIONS (5)
  - Diarrhoea [Not Recovered/Not Resolved]
  - Vomiting [Unknown]
  - Nausea [Unknown]
  - Local swelling [Unknown]
  - Musculoskeletal stiffness [Unknown]

NARRATIVE: CASE EVENT DATE: 2014
